FAERS Safety Report 19603448 (Version 1)
Quarter: 2021Q3

REPORT INFORMATION
  Report Type: Report from Study
  Country: CA (occurrence: CA)
  Receive Date: 20210723
  Receipt Date: 20210723
  Transmission Date: 20211014
  Serious: Yes (Other)
  Sender: FDA-Public Use
  Company Number: CA-ORION CORPORATION ORION PHARMA-21_00015269

PATIENT
  Age: 52 Year
  Sex: Female

DRUGS (11)
  1. METHOTREXATE (TRADE NAME UNKNOWN) [Suspect]
     Active Substance: METHOTREXATE
     Indication: PRODUCT USED FOR UNKNOWN INDICATION
     Route: 048
  2. DESOXIMETASONE. [Concomitant]
     Active Substance: DESOXIMETASONE
     Route: 058
  3. METHOTREXATE (TRADE NAME UNKNOWN) [Suspect]
     Active Substance: METHOTREXATE
     Route: 058
  4. INDOCID [INDOMETACIN] [Concomitant]
     Active Substance: INDOMETHACIN
     Route: 065
  5. VIOXX [Concomitant]
     Active Substance: ROFECOXIB
     Route: 065
  6. COLCHICINE. [Suspect]
     Active Substance: COLCHICINE
     Indication: PRODUCT USED FOR UNKNOWN INDICATION
     Route: 048
  7. ARAVA [Concomitant]
     Active Substance: LEFLUNOMIDE
     Route: 048
  8. PREDNISONE. [Concomitant]
     Active Substance: PREDNISONE
     Route: 048
  9. DICLOFENAC [Suspect]
     Active Substance: DICLOFENAC
     Indication: PRODUCT USED FOR UNKNOWN INDICATION
     Route: 048
  10. ERELZI [Suspect]
     Active Substance: ETANERCEPT-SZZS
     Indication: ANKYLOSING SPONDYLITIS
     Route: 058
  11. NAPROXEN. [Concomitant]
     Active Substance: NAPROXEN
     Route: 065

REACTIONS (6)
  - Episcleritis [Unknown]
  - C-reactive protein abnormal [Unknown]
  - Crohn^s disease [Unknown]
  - Product use issue [Unknown]
  - Drug ineffective [Unknown]
  - Uveitis [Unknown]
